FAERS Safety Report 23142849 (Version 2)
Quarter: 2023Q4

REPORT INFORMATION
  Report Type: Spontaneous
  Country: CA (occurrence: CA)
  Receive Date: 20231103
  Receipt Date: 20231107
  Transmission Date: 20240109
  Serious: Yes (Hospitalization, Other)
  Sender: FDA-Public Use
  Company Number: CA-CELLTRION INC.-2022CA015696

PATIENT

DRUGS (16)
  1. INFLECTRA [Suspect]
     Active Substance: INFLIXIMAB-DYYB
     Indication: Colitis ulcerative
     Dosage: 800 MG, WEEK 0,2,6 THEN EVERY 8 WEEKS
     Route: 042
     Dates: start: 20220715
  2. INFLECTRA [Suspect]
     Active Substance: INFLIXIMAB-DYYB
     Dosage: 800 MG, WEEK 0,2,6 THEN EVERY 8 WEEKS
     Route: 042
     Dates: start: 20220728
  3. INFLECTRA [Suspect]
     Active Substance: INFLIXIMAB-DYYB
     Dosage: 800 MG, WEEK 0,2,6 THEN EVERY 8 WEEKS
     Route: 042
     Dates: start: 20220826
  4. INFLECTRA [Suspect]
     Active Substance: INFLIXIMAB-DYYB
     Dosage: 800 MG, WEEK 0, 2, 6 THEN EVERY 8 WEEKS
     Route: 042
     Dates: start: 20221018
  5. INFLECTRA [Suspect]
     Active Substance: INFLIXIMAB-DYYB
     Dosage: 800 MG, WEEK 0, 2, 6 THEN EVERY 8 WEEKS
     Route: 042
     Dates: start: 20221018
  6. INFLECTRA [Suspect]
     Active Substance: INFLIXIMAB-DYYB
     Dosage: 800 MG, WEEK 0, 2, 6 THEN EVERY 8 WEEKS
     Route: 042
     Dates: start: 20221215
  7. INFLECTRA [Suspect]
     Active Substance: INFLIXIMAB-DYYB
     Dosage: 800 MG, WEEK 0, 2, 6 THEN EVERY 8 WEEKS (8 WEEKS)
     Route: 042
     Dates: start: 20230210
  8. INFLECTRA [Suspect]
     Active Substance: INFLIXIMAB-DYYB
     Dosage: 800 MG, EVERY 4 WEEKS
     Route: 042
     Dates: start: 20230310
  9. INFLECTRA [Suspect]
     Active Substance: INFLIXIMAB-DYYB
     Dosage: 800 MG, EVERY 4 WEEKS
     Route: 042
     Dates: start: 20230405
  10. INFLECTRA [Suspect]
     Active Substance: INFLIXIMAB-DYYB
     Dosage: 800 MG, EVERY 4 WEEKS
     Route: 042
     Dates: start: 20230504
  11. INFLECTRA [Suspect]
     Active Substance: INFLIXIMAB-DYYB
     Dosage: 800 MG, EVERY 4 WEEKS
     Route: 042
     Dates: start: 20230629
  12. INFLECTRA [Suspect]
     Active Substance: INFLIXIMAB-DYYB
     Dosage: 800 MG, EVERY 4 WEEKS
     Route: 042
     Dates: start: 20230727
  13. INFLECTRA [Suspect]
     Active Substance: INFLIXIMAB-DYYB
     Dosage: 800 MG, AFTER 4 WEEKS AND 4 DAYS (PRESCRIBED IS EVERY 4 WEEKS)
     Route: 042
     Dates: start: 20230828
  14. INFLECTRA [Suspect]
     Active Substance: INFLIXIMAB-DYYB
     Dosage: 800 MG, EVERY 4 WEEKS
     Route: 042
     Dates: start: 20230925
  15. HYDROCORTISONE [Concomitant]
     Active Substance: HYDROCORTISONE
     Indication: Premedication
     Dosage: UNK
  16. PREDNISONE [Concomitant]
     Active Substance: PREDNISONE
     Dosage: 8 MG, DAILY
     Dates: start: 202210

REACTIONS (7)
  - Appendicitis [Unknown]
  - Gastrointestinal disorder [Unknown]
  - Drug level decreased [Unknown]
  - Condition aggravated [Recovered/Resolved]
  - Off label use [Unknown]
  - Off label use [Unknown]
  - Intentional product use issue [Unknown]

NARRATIVE: CASE EVENT DATE: 20220826
